FAERS Safety Report 8808670 (Version 1)
Quarter: 2012Q4

REPORT INFORMATION
  Report Type: 
  Country: BR (occurrence: BR)
  Receive Date: 20120926
  Receipt Date: 20120926
  Transmission Date: 20130627
  Serious: Yes (Hospitalization, Other)
  Sender: FDA-Public Use
  Company Number: PHHY2012BR082823

PATIENT
  Sex: Male
  Weight: 91 kg

DRUGS (7)
  1. FORASEQ [Suspect]
     Indication: EMPHYSEMA
     Dosage: UNK UKN, BID
  2. BETAHISTINE DIHYDROCHLORIDE [Concomitant]
     Indication: LABYRINTHITIS
     Dosage: 1 DF, QD
     Route: 048
  3. FUROSEMIDE [Concomitant]
     Indication: DYSURIA
     Dosage: 2 DF, QD
     Route: 048
  4. RIVOTRIL [Concomitant]
     Indication: INSOMNIA
     Dosage: 1 DF, PRN
     Route: 048
  5. DILTIAZEM HYDROCHLORIDE [Concomitant]
     Indication: CARDIAC DISORDER
     Dosage: 2 DF, QD
     Route: 048
     Dates: start: 2011
  6. LOSARTAN [Concomitant]
     Indication: BLOOD PRESSURE
     Dosage: 2 DF, QD
     Route: 048
  7. FLUTICASONE FUROATE [Concomitant]
     Indication: NASAL CONGESTION
     Dosage: 2 drp, UNK
     Route: 045

REACTIONS (2)
  - Infarction [Recovering/Resolving]
  - Aortic occlusion [Recovering/Resolving]
